FAERS Safety Report 6720198-X (Version None)
Quarter: 2010Q2

REPORT INFORMATION
  Report Type: 
  Country: None (occurrence: None)
  Receive Date: 20100511
  Receipt Date: 20100414
  Transmission Date: 20101027
  Serious: Yes (Hospitalization)
  Sender: FDA-Public Use
  Company Number: KR-BAYER-201016678GPV

PATIENT
  Age: 68 Year
  Sex: Male
  Weight: 60 kg

DRUGS (31)
  1. SORAFENIB [Suspect]
     Indication: HEPATIC NEOPLASM MALIGNANT
     Dosage: TOTAL DAILY DOSE: 400 MG
     Route: 048
     Dates: start: 20100218, end: 20100220
  2. PLACEBO [Suspect]
     Indication: HEPATIC NEOPLASM MALIGNANT
     Dosage: TOTAL DAILY DOSE: 100 MG
     Route: 048
     Dates: start: 20100218, end: 20100220
  3. CHLORPHENIRAMINE MALEATE [Concomitant]
     Route: 042
     Dates: start: 20100222, end: 20100222
  4. CHLORPHENIRAMINE MALEATE [Concomitant]
     Route: 042
     Dates: start: 20100224, end: 20100225
  5. CHLORPHENIRAMINE MALEATE [Concomitant]
     Route: 042
     Dates: start: 20100221, end: 20100221
  6. CHLORPHENIRAMINE MALEATE [Concomitant]
     Route: 042
     Dates: start: 20100223, end: 20100223
  7. CHLORPHENIRAMINE MALEATE [Concomitant]
     Route: 042
     Dates: start: 20100226, end: 20100303
  8. CIPROFLOXACIN [Concomitant]
     Route: 042
     Dates: start: 20100222, end: 20100222
  9. CIPROFLOXACIN [Concomitant]
     Route: 048
     Dates: start: 20100223, end: 20100223
  10. CIPROFLOXACIN [Concomitant]
     Route: 048
     Dates: start: 20100224, end: 20100304
  11. CIPROFLOXACIN [Concomitant]
     Route: 048
     Dates: start: 20100221, end: 20100222
  12. TAMIPOOL [Concomitant]
     Indication: DECREASED APPETITE
     Dosage: 2 VIAL
     Route: 042
     Dates: start: 20100220, end: 20100221
  13. TAMIPOOL [Concomitant]
     Dosage: 2 VIAL
     Route: 042
     Dates: start: 20100223, end: 20100223
  14. TAMIPOOL [Concomitant]
     Dosage: 3 VIAL
     Route: 042
     Dates: start: 20100222, end: 20100222
  15. PANTOPRAZOLE [Concomitant]
     Route: 042
     Dates: start: 20100222, end: 20100222
  16. PANTOPRAZOLE [Concomitant]
     Route: 042
     Dates: start: 20100221, end: 20100221
  17. PANTOPRAZOLE [Concomitant]
     Route: 042
     Dates: start: 20100220, end: 20100220
  18. SOMATOSTATIN [Concomitant]
     Indication: HAEMORRHAGE
     Route: 042
     Dates: start: 20100222, end: 20100222
  19. SOMATOSTATIN [Concomitant]
     Route: 042
     Dates: start: 20100220, end: 20100221
  20. SOMATOSTATIN [Concomitant]
     Route: 048
     Dates: start: 20100223, end: 20100223
  21. LAMIVUDINE [Concomitant]
     Indication: HEPATITIS B
     Route: 048
     Dates: start: 20080601
  22. ADEFOVIR DIPIVOXIL KIT [Concomitant]
     Indication: HEPATITIS B
     Route: 048
     Dates: start: 20090402
  23. AROMIN [Concomitant]
     Indication: HEPATITIS B
     Route: 048
     Dates: start: 20090402
  24. FERROUS SULFATE TAB [Concomitant]
     Indication: ANAEMIA
     Route: 048
     Dates: start: 20090402, end: 20100122
  25. SMECTA [Concomitant]
     Indication: DIARRHOEA
     Route: 048
     Dates: start: 20091201
  26. PROPRANOLOL [Concomitant]
     Indication: VARICOSE VEIN
     Route: 042
     Dates: start: 20090709
  27. DEHYDRO CODEIN [Concomitant]
     Indication: COUGH
     Route: 048
     Dates: start: 20091201, end: 20091203
  28. LACTOBACILLUS [Concomitant]
     Indication: DIARRHOEA
     Route: 048
     Dates: start: 20100116
  29. NIFUROXAZIDE [Concomitant]
     Indication: DIARRHOEA
     Route: 048
     Dates: start: 20100116, end: 20100117
  30. FEROBA [Concomitant]
     Indication: ANAEMIA
     Route: 048
     Dates: start: 20100225
  31. FUROSEMIDE [Concomitant]
     Route: 048
     Dates: start: 20100227

REACTIONS (1)
  - HEPATIC ENCEPHALOPATHY [None]
